FAERS Safety Report 14316001 (Version 1)
Quarter: 2017Q4

REPORT INFORMATION
  Report Type: Spontaneous
  Country: FR (occurrence: FR)
  Receive Date: 20171221
  Receipt Date: 20171221
  Transmission Date: 20180321
  Serious: Yes (Other)
  Sender: FDA-Public Use
  Company Number: FR-MERCK KGAA-2037617

PATIENT
  Age: 69 Year
  Sex: Female
  Weight: 58 kg

DRUGS (2)
  1. LEVOTHYROX 25 [Suspect]
     Active Substance: LEVOTHYROXINE SODIUM
     Route: 048
     Dates: start: 20170813, end: 20171017
  2. NOVOTHYROX [Suspect]
     Active Substance: LEVOTHYROXINE SODIUM
     Indication: RADIOTHERAPY TO THYROID
     Route: 048
     Dates: start: 20170813, end: 20171017

REACTIONS (13)
  - Vertigo [Recovered/Resolved]
  - Arrhythmia [Recovered/Resolved]
  - Blood thyroid stimulating hormone normal [Unknown]
  - Panic attack [Recovered/Resolved]
  - Tinnitus [Not Recovered/Not Resolved]
  - Appetite disorder [Recovered/Resolved]
  - Dyspnoea [Recovered/Resolved]
  - Dyspepsia [Recovered/Resolved]
  - Fatigue [Recovered/Resolved]
  - Sense of oppression [Recovered/Resolved]
  - Affective disorder [Recovered/Resolved]
  - Weight decreased [Recovered/Resolved]
  - Respiratory disorder [Recovered/Resolved]

NARRATIVE: CASE EVENT DATE: 20170816
